FAERS Safety Report 6045553-5 (Version None)
Quarter: 2009Q1

REPORT INFORMATION
  Report Type: 
  Country: None (occurrence: None)
  Receive Date: 20090121
  Receipt Date: 20090116
  Transmission Date: 20090719
  Serious: Yes (Hospitalization)
  Sender: FDA-Public Use
  Company Number: B0555136A

PATIENT
  Age: 56 Year
  Sex: Male
  Weight: 154.4 kg

DRUGS (12)
  1. COMBIVIR [Suspect]
     Indication: HIV INFECTION
     Dosage: 1TAB TWICE PER DAY
     Route: 048
     Dates: start: 20050216
  2. MARAVIROC [Suspect]
     Indication: HIV INFECTION
     Dosage: 300MG TWICE PER DAY
     Route: 048
     Dates: start: 20050216
  3. TENOFOVIR [Suspect]
     Indication: HIV INFECTION
     Dosage: 300MG PER DAY
     Route: 048
     Dates: start: 20050216
  4. VALACYCLOVIR HCL [Concomitant]
     Dates: start: 20010926
  5. ALENDRONATE SODIUM [Concomitant]
     Dates: start: 20040414
  6. PAROXETINE HCL [Concomitant]
     Dates: start: 20000201
  7. RAMIPRIL [Concomitant]
     Dates: start: 20081009
  8. LACTULOSE [Concomitant]
     Dates: start: 20081120, end: 20081120
  9. NULYTELY [Concomitant]
  10. SODIUM BICARBONATE [Concomitant]
     Dates: start: 20081122, end: 20081122
  11. ENFUVIRTIDE [Concomitant]
     Dates: start: 20050216
  12. BACTRIM DS [Concomitant]
     Dates: start: 19940501

REACTIONS (6)
  - BLOOD BLISTER [None]
  - LOCAL SWELLING [None]
  - NEUROPATHIC ULCER [None]
  - OEDEMA PERIPHERAL [None]
  - OSTEOMYELITIS [None]
  - STAPHYLOCOCCAL INFECTION [None]
